FAERS Safety Report 13676686 (Version 1)
Quarter: 2017Q2

REPORT INFORMATION
  Report Type: Spontaneous
  Country: US (occurrence: US)
  Receive Date: 20170622
  Receipt Date: 20170622
  Transmission Date: 20170830
  Serious: No
  Sender: FDA-Public Use
  Company Number: US-PFIZER INC-2017268924

PATIENT
  Age: 68 Year
  Sex: Female
  Weight: 68.4 kg

DRUGS (4)
  1. ADVIL [Suspect]
     Active Substance: IBUPROFEN
     Indication: PAIN
     Dosage: 400 MG, 2X/DAY
     Dates: start: 201705
  2. ADVIL PM [Concomitant]
     Active Substance: DIPHENHYDRAMINE CITRATE\IBUPROFEN
     Dosage: 1 DF, DAILY (AT NIGHT)
  3. LISINOPRIL. [Concomitant]
     Active Substance: LISINOPRIL
     Indication: BLOOD PRESSURE ABNORMAL
     Dosage: 10 MG, 1X/DAY
  4. ADVIL [Suspect]
     Active Substance: IBUPROFEN
     Indication: HUMERUS FRACTURE
     Dosage: 400 MG, 1X/DAY
     Dates: start: 20170618

REACTIONS (1)
  - Diarrhoea [Recovering/Resolving]
